FAERS Safety Report 5742540-9 (Version None)
Quarter: 2008Q2

REPORT INFORMATION
  Report Type: 
  Country: None (occurrence: None)
  Receive Date: 20080515
  Receipt Date: 20080505
  Transmission Date: 20081010
  Serious: No
  Sender: FDA-Public Use
  Company Number: 2008-176692-NL

PATIENT
  Age: 28 Year
  Sex: Female

DRUGS (2)
  1. ETONOGESTREL [Suspect]
     Indication: CONTRACEPTION
     Dosage: DF SUBCUTANEOUS
     Route: 058
     Dates: start: 20050415
  2. NAPROXEN [Concomitant]

REACTIONS (3)
  - OVARIAN CYST [None]
  - OVARIAN MASS [None]
  - TACHYCARDIA [None]
